FAERS Safety Report 12473186 (Version 1)
Quarter: 2016Q2

REPORT INFORMATION
  Report Type: Spontaneous
  Country: US (occurrence: US)
  Receive Date: 20160616
  Receipt Date: 20160616
  Transmission Date: 20160815
  Serious: Yes (Other)
  Sender: FDA-Public Use
  Company Number: US-PURDUE-USA-2016-0131570

PATIENT
  Sex: Female

DRUGS (2)
  1. ALPRAZOLAM. [Suspect]
     Active Substance: ALPRAZOLAM
     Indication: PRODUCT USED FOR UNKNOWN INDICATION
     Route: 065
  2. OXYCODONE HCL CR TABLETS (SIMILAR TO NDA 22-272) [Suspect]
     Active Substance: OXYCODONE HYDROCHLORIDE
     Indication: PRODUCT USED FOR UNKNOWN INDICATION
     Route: 048

REACTIONS (8)
  - Gait disturbance [Unknown]
  - Ocular hyperaemia [Unknown]
  - Impaired driving ability [Unknown]
  - Dysarthria [Unknown]
  - Glassy eyes [Unknown]
  - Confusional state [Unknown]
  - Drug abuse [Unknown]
  - Road traffic accident [Unknown]

NARRATIVE: CASE EVENT DATE: 201307
